FAERS Safety Report 4266988-7 (Version None)
Quarter: 2004Q1

REPORT INFORMATION
  Report Type: 
  Country: None (occurrence: None)
  Receive Date: 20040107
  Receipt Date: 20031222
  Transmission Date: 20041129
  Serious: Yes (Other)
  Sender: FDA-Public Use
  Company Number: OMPQ-NO-0312S-0961

PATIENT
  Age: 73 Year
  Sex: Male

DRUGS (7)
  1. OMNIPAQUE 140 [Suspect]
     Indication: ANGINA PECTORIS
     Dosage: 100 ML, SINGLE DOSE, I.A.
     Dates: start: 20031204, end: 20031204
  2. TICLOPIDINE HCL [Concomitant]
  3. HEPARIN [Concomitant]
  4. ISOSORBIDE MONONITRATE (ITOROL) [Concomitant]
  5. ASPIRIN (BAYASPIRIN) [Concomitant]
  6. DIOVAN [Concomitant]
  7. LANSOPRAZOLE [Concomitant]

REACTIONS (2)
  - CATHETER RELATED COMPLICATION [None]
  - HEPARIN-INDUCED THROMBOCYTOPENIA [None]
